FAERS Safety Report 16420031 (Version 3)
Quarter: 2021Q4

REPORT INFORMATION
  Report Type: Spontaneous
  Country: US (occurrence: None)
  Receive Date: 20190612
  Receipt Date: 20211118
  Transmission Date: 20220303
  Serious: Yes (Other)
  Sender: FDA-Public Use
  Company Number: 2018SF65479

PATIENT
  Age: 60 Year
  Sex: Female

DRUGS (18)
  1. NEXIUM [Suspect]
     Active Substance: ESOMEPRAZOLE MAGNESIUM
     Route: 048
     Dates: start: 201902
  2. NEXIUM 24HR [Suspect]
     Active Substance: ESOMEPRAZOLE MAGNESIUM
     Route: 048
     Dates: start: 201902
  3. OMEPRAZOLE [Suspect]
     Active Substance: OMEPRAZOLE
     Route: 065
  4. NOVOLOG [Concomitant]
     Active Substance: INSULIN ASPART
  5. ROBITUSSIN (GUAIFENESIN) [Concomitant]
     Active Substance: GUAIFENESIN
  6. AMOXICILLIN [Concomitant]
     Active Substance: AMOXICILLIN
  7. ACETAMINOPHEN [Concomitant]
     Active Substance: ACETAMINOPHEN
  8. AZITHROMYCIN [Concomitant]
     Active Substance: AZITHROMYCIN
  9. TERCONAZOLE [Concomitant]
     Active Substance: TERCONAZOLE
  10. IBUPROFEN [Concomitant]
     Active Substance: IBUPROFEN
  11. NAPROXEN [Concomitant]
     Active Substance: NAPROXEN
  12. COUMADIN [Concomitant]
     Active Substance: WARFARIN SODIUM
  13. LANTUS [Concomitant]
     Active Substance: INSULIN GLARGINE
  14. LOSARTAN [Concomitant]
     Active Substance: LOSARTAN
  15. CYCLOBENZAPRINE [Concomitant]
     Active Substance: CYCLOBENZAPRINE
  16. FERROUS SULFATE [Concomitant]
     Active Substance: FERROUS SULFATE
  17. ATORVASTATIN [Concomitant]
     Active Substance: ATORVASTATIN
  18. RANITIDINE [Concomitant]
     Active Substance: RANITIDINE

REACTIONS (5)
  - Chronic kidney disease [Not Recovered/Not Resolved]
  - Tubulointerstitial nephritis [Unknown]
  - Acute kidney injury [Unknown]
  - End stage renal disease [Unknown]
  - Dyspepsia [Unknown]

NARRATIVE: CASE EVENT DATE: 20140101
